FAERS Safety Report 8181663-4 (Version None)
Quarter: 2012Q1

REPORT INFORMATION
  Report Type: 
  Country: None (occurrence: None)
  Receive Date: 20120302
  Receipt Date: 20120229
  Transmission Date: 20120608
  Serious: Yes (Death)
  Sender: FDA-Public Use
  Company Number: US-BAYER-2012-020469

PATIENT
  Age: 30 Year
  Sex: Male

DRUGS (5)
  1. MORPHINE [Suspect]
  2. CETIRIZINE [Suspect]
  3. HYDROXYZINE [Suspect]
  4. GABAPENTIN [Suspect]
  5. ASPIRIN [Suspect]

REACTIONS (1)
  - COMPLETED SUICIDE [None]
